FAERS Safety Report 21484189 (Version 2)
Quarter: 2022Q4

REPORT INFORMATION
  Report Type: Report from Study
  Country: CA (occurrence: None)
  Receive Date: 20221020
  Receipt Date: 20221102
  Transmission Date: 20230112
  Serious: Yes (Hospitalization)
  Sender: FDA-Public Use
  Company Number: 2022A302385

PATIENT
  Age: 601 Month
  Sex: Male

DRUGS (6)
  1. FASENRA [Suspect]
     Active Substance: BENRALIZUMAB
     Indication: Asthma
     Route: 058
     Dates: start: 202208, end: 202208
  2. SPIRIVA RESPIMAT [Concomitant]
     Active Substance: TIOTROPIUM BROMIDE
     Dosage: 2 PUFFS OD
     Route: 065
  3. NASONEX [Concomitant]
     Active Substance: MOMETASONE FUROATE
     Dosage: 2 DROPS PER NOSTRIL BID
     Route: 065
  4. SINGULAIR [Concomitant]
     Active Substance: MONTELUKAST SODIUM
     Route: 048
  5. SYMBICORT [Concomitant]
     Active Substance: BUDESONIDE\FORMOTEROL FUMARATE DIHYDRATE
     Dosage: 2 PUFFS BID AND PRN
     Route: 065
  6. VENTOLIN [Concomitant]
     Active Substance: ALBUTEROL SULFATE
     Route: 065

REACTIONS (4)
  - Abdominal pain [Recovered/Resolved]
  - Gastrointestinal disorder [Unknown]
  - Biliary obstruction [Unknown]
  - Biliary colic [Unknown]

NARRATIVE: CASE EVENT DATE: 20220701
